FAERS Safety Report 4928844-8 (Version None)
Quarter: 2006Q1

REPORT INFORMATION
  Report Type: 
  Country: None (occurrence: None)
  Receive Date: 20060301
  Receipt Date: 20060217
  Transmission Date: 20060701
  Serious: Yes (Hospitalization, Other)
  Sender: FDA-Public Use
  Company Number: CH-BRISTOL-MYERS SQUIBB COMPANY-13294236

PATIENT
  Age: 78 Year
  Sex: Female

DRUGS (7)
  1. GLUCOPHAGE [Suspect]
     Indication: DIABETES MELLITUS NON-INSULIN-DEPENDENT
     Route: 048
     Dates: end: 20060201
  2. ASPIRIN [Suspect]
     Route: 048
  3. DIAMICRON [Suspect]
     Route: 048
     Dates: end: 20060201
  4. TENORMIN [Suspect]
     Route: 048
  5. DIGOXIN [Concomitant]
     Route: 048
  6. TORSEMIDE [Concomitant]
     Route: 048
  7. PRAVASTATIN SODIUM [Concomitant]
     Route: 048

REACTIONS (3)
  - CONFUSIONAL STATE [None]
  - HYPOGLYCAEMIA [None]
  - PSYCHOMOTOR SKILLS IMPAIRED [None]
